FAERS Safety Report 6732713-0 (Version None)
Quarter: 2010Q2

REPORT INFORMATION
  Report Type: 
  Country: None (occurrence: None)
  Receive Date: 20100514
  Receipt Date: 20100507
  Transmission Date: 20101027
  Serious: Yes (Hospitalization)
  Sender: FDA-Public Use
  Company Number: 2010SP026189

PATIENT
  Age: 58 Year
  Sex: Male

DRUGS (2)
  1. TEMODAL [Suspect]
     Indication: GLIOBLASTOMA MULTIFORME
     Dosage: 155 MG; QD; PO
     Route: 048
     Dates: start: 20090603
  2. DEXAMETHASONE [Suspect]
     Indication: GLIOBLASTOMA MULTIFORME
     Dosage: 4 MG; QD; PO
     Route: 048
     Dates: start: 20090430

REACTIONS (3)
  - DIABETES MELLITUS [None]
  - DRUG INTERACTION [None]
  - POLYDIPSIA [None]
